FAERS Safety Report 23732525 (Version 2)
Quarter: 2024Q2

REPORT INFORMATION
  Report Type: Spontaneous
  Country: JP (occurrence: JP)
  Receive Date: 20240411
  Receipt Date: 20240411
  Transmission Date: 20240715
  Serious: Yes (Hospitalization)
  Sender: FDA-Public Use
  Company Number: JP-Eisai-202400150_FYC_P_1

PATIENT
  Age: 8 Year
  Sex: Male

DRUGS (3)
  1. FYCOMPA [Suspect]
     Active Substance: PERAMPANEL
     Indication: Dyskinesia
     Dosage: DOSE UNKNOWN
     Route: 048
  2. GABAPENTIN [Concomitant]
     Active Substance: GABAPENTIN
     Indication: Product used for unknown indication
     Dosage: DOSE UNKNOWN
     Route: 065
  3. TOPIRAMATE [Concomitant]
     Active Substance: TOPIRAMATE
     Indication: Product used for unknown indication
     Dosage: DOSE UNKNOWN
     Route: 065

REACTIONS (7)
  - Dyspnoea [Unknown]
  - Off label use [Unknown]
  - Upper respiratory tract infection [Recovering/Resolving]
  - Salivary hypersecretion [Unknown]
  - Hypertonia [Unknown]
  - Aspiration [Unknown]
  - Glossoptosis [Unknown]
